FAERS Safety Report 23996290 (Version 3)
Quarter: 2024Q3

REPORT INFORMATION
  Report Type: Spontaneous
  Country: JP (occurrence: JP)
  Receive Date: 20240620
  Receipt Date: 20240701
  Transmission Date: 20241017
  Serious: Yes (Other)
  Sender: PFIZER
  Company Number: JP-PFIZER INC-PV202400078718

PATIENT
  Age: 57 Year
  Sex: Female
  Weight: 46.6 kg

DRUGS (1)
  1. BEVACIZUMAB [Suspect]
     Active Substance: BEVACIZUMAB
     Indication: Breast cancer
     Dosage: UNK
     Dates: start: 201210, end: 2013

REACTIONS (2)
  - Thrombotic microangiopathy [Unknown]
  - Renal failure [Unknown]

NARRATIVE: CASE EVENT DATE: 20130101
